FAERS Safety Report 9347933 (Version 1)
Quarter: 2013Q2

REPORT INFORMATION
  Report Type: Spontaneous
  Country: TW (occurrence: TW)
  Receive Date: 20130614
  Receipt Date: 20130614
  Transmission Date: 20140414
  Serious: Yes (Hospitalization)
  Sender: FDA-Public Use
  Company Number: TW-AMGEN-TWNSP2013042015

PATIENT
  Age: 70 Year
  Sex: Female

DRUGS (2)
  1. ENBREL [Suspect]
     Indication: RHEUMATOID ARTHRITIS
     Dosage: 25 MG, BIW
     Route: 058
     Dates: start: 20050311, end: 20080505
  2. ENBREL [Suspect]
     Dosage: 25 MG, SIX TIMES PER MONTH
     Route: 058
     Dates: start: 20080506, end: 20130430

REACTIONS (1)
  - Hepatocellular carcinoma [Recovering/Resolving]
